FAERS Safety Report 12429911 (Version 1)
Quarter: 2016Q2

REPORT INFORMATION
  Report Type: Spontaneous
  Country: US (occurrence: US)
  Receive Date: 20160602
  Receipt Date: 20160602
  Transmission Date: 20160815
  Serious: No
  Sender: FDA-Public Use
  Company Number: US-KADMON PHARMACEUTICALS, LLC-KAD201504-000748

PATIENT
  Sex: Male

DRUGS (9)
  1. RIBAVIRIN. [Suspect]
     Active Substance: RIBAVIRIN
  2. SOVALDI [Concomitant]
     Active Substance: SOFOSBUVIR
  3. SOVALDI [Concomitant]
     Active Substance: SOFOSBUVIR
     Indication: HEPATITIS C
  4. RIBAVIRIN. [Suspect]
     Active Substance: RIBAVIRIN
     Indication: HEPATITIS C
  5. RIBAVIRIN. [Suspect]
     Active Substance: RIBAVIRIN
  6. INTERFERON [Suspect]
     Active Substance: INTERFERON
  7. INTERFERON [Suspect]
     Active Substance: INTERFERON
  8. SOVALDI [Concomitant]
     Active Substance: SOFOSBUVIR
  9. INTERFERON [Suspect]
     Active Substance: INTERFERON
     Indication: HEPATITIS C

REACTIONS (3)
  - Hypertension [Unknown]
  - Hepatitis C [Recovered/Resolved]
  - Adverse drug reaction [Unknown]
